FAERS Safety Report 16015423 (Version 1)
Quarter: 2019Q1

REPORT INFORMATION
  Report Type: Spontaneous
  Country: US (occurrence: US)
  Receive Date: 20190228
  Receipt Date: 20190228
  Transmission Date: 20190418
  Serious: No
  Sender: FDA-Public Use
  Company Number: US-ELI_LILLY_AND_COMPANY-US201902010634

PATIENT
  Sex: Male

DRUGS (2)
  1. OLANZAPINE 2.5MG [Suspect]
     Active Substance: OLANZAPINE
     Indication: DELIRIUM
     Dosage: 2.5 MG, UNKNOWN
     Route: 065
  2. OLANZAPINE 2.5MG [Suspect]
     Active Substance: OLANZAPINE
     Indication: HALLUCINATION
     Dosage: 5 MG, UNKNOWN
     Route: 065

REACTIONS (2)
  - Joint swelling [Unknown]
  - Peripheral swelling [Unknown]
